FAERS Safety Report 8051480-4 (Version None)
Quarter: 2012Q1

REPORT INFORMATION
  Report Type: 
  Country: None (occurrence: None)
  Receive Date: 20120117
  Receipt Date: 20120105
  Transmission Date: 20120608
  Serious: Yes (Hospitalization)
  Sender: FDA-Public Use
  Company Number: IT-ASTRAZENECA-2011SE77480

PATIENT
  Age: 29015 Day
  Sex: Male

DRUGS (3)
  1. OMEPRAZOLE [Suspect]
     Indication: ABDOMINAL PAIN UPPER
     Route: 041
     Dates: start: 20111219, end: 20111219
  2. SCOPOLAMINE [Suspect]
     Indication: ABDOMINAL PAIN UPPER
     Dosage: 20 MG/ML -VIAL 1ML ONCE/SINGLE ADMINISTRATION
     Route: 042
     Dates: start: 20111219, end: 20111219
  3. LOSARTAN POTASSIUM /DROCLOTIAZIDE [Concomitant]
     Indication: HYPERTENSION
     Route: 065

REACTIONS (2)
  - TONGUE OEDEMA [None]
  - DRY MOUTH [None]
